FAERS Safety Report 4946268-4 (Version None)
Quarter: 2006Q1

REPORT INFORMATION
  Report Type: 
  Country: None (occurrence: None)
  Receive Date: 20060317
  Receipt Date: 20060313
  Transmission Date: 20060701
  Serious: Yes (Other)
  Sender: FDA-Public Use
  Company Number: PHFR2006GB01143

PATIENT
  Age: 63 Year
  Sex: Male
  Weight: 73 kg

DRUGS (1)
  1. TERBINAFINE HCL [Suspect]
     Dosage: 250 MG/DAY
     Route: 048
     Dates: start: 20060103, end: 20060227

REACTIONS (3)
  - ANXIETY [None]
  - INSOMNIA [None]
  - PALPITATIONS [None]
